FAERS Safety Report 9802599 (Version 1)
Quarter: 2014Q1

REPORT INFORMATION
  Report Type: Spontaneous
  Country: US (occurrence: US)
  Receive Date: 20140108
  Receipt Date: 20140108
  Transmission Date: 20141002
  Serious: Yes (Hospitalization)
  Sender: FDA-Public Use
  Company Number: US-BIOGENIDEC-2014BI000500

PATIENT
  Sex: Female

DRUGS (2)
  1. AVONEX [Suspect]
     Indication: MULTIPLE SCLEROSIS
     Route: 030
     Dates: start: 19970829
  2. AVONEX [Suspect]
     Indication: MULTIPLE SCLEROSIS
     Route: 030
     Dates: start: 20090708

REACTIONS (9)
  - Joint injury [Unknown]
  - Fall [Recovered/Resolved]
  - Rotator cuff syndrome [Unknown]
  - Burning sensation [Not Recovered/Not Resolved]
  - Motor dysfunction [Unknown]
  - Vertigo [Unknown]
  - Musculoskeletal disorder [Unknown]
  - Muscular weakness [Unknown]
  - Depressed mood [Not Recovered/Not Resolved]
